FAERS Safety Report 6100083-7 (Version None)
Quarter: 2009Q1

REPORT INFORMATION
  Report Type: 
  Country: None (occurrence: None)
  Receive Date: 20090303
  Receipt Date: 20090225
  Transmission Date: 20090719
  Serious: Yes (Other)
  Sender: FDA-Public Use
  Company Number: B0562233A

PATIENT
  Age: 32 Year
  Sex: Female

DRUGS (1)
  1. LAMICTAL [Suspect]
     Indication: EPILEPSY
     Route: 048

REACTIONS (4)
  - JAUNDICE [None]
  - RASH ERYTHEMATOUS [None]
  - RASH MACULAR [None]
  - SKIN EXFOLIATION [None]
